FAERS Safety Report 5432012-3 (Version None)
Quarter: 2007Q3

REPORT INFORMATION
  Report Type: 
  Country: None (occurrence: None)
  Receive Date: 20070830
  Receipt Date: 20070810
  Transmission Date: 20080115
  Serious: No
  Sender: FDA-Public Use
  Company Number: US-BOEHRINGER INGELHEIM PHARMACEUTICALS, INC.-2007-BP-17764BP

PATIENT
  Sex: Female
  Weight: 68 kg

DRUGS (1)
  1. MICARDIS [Suspect]
     Indication: HYPERTENSION
     Route: 048
     Dates: start: 20070501, end: 20070717

REACTIONS (3)
  - GAIT DISTURBANCE [None]
  - PAIN IN EXTREMITY [None]
  - POLLAKIURIA [None]
